FAERS Safety Report 14997729 (Version 2)
Quarter: 2018Q2

REPORT INFORMATION
  Report Type: Spontaneous
  Country: JP (occurrence: JP)
  Receive Date: 20180611
  Receipt Date: 20180615
  Transmission Date: 20180711
  Serious: Yes (Hospitalization, Other)
  Sender: FDA-Public Use
  Company Number: JP-GILEAD-2018-0343472

PATIENT
  Age: 70 Year
  Sex: Female

DRUGS (1)
  1. VEMLIDY [Suspect]
     Active Substance: TENOFOVIR ALAFENAMIDE FUMARATE
     Indication: HEPATITIS B
     Dosage: 25 MG, UNK
     Route: 048
     Dates: start: 201805

REACTIONS (1)
  - Osteoarthritis [Unknown]

NARRATIVE: CASE EVENT DATE: 20180605
